FAERS Safety Report 21489113 (Version 10)
Quarter: 2024Q2

REPORT INFORMATION
  Report Type: Report from Study
  Country: BR (occurrence: BR)
  Receive Date: 20221021
  Receipt Date: 20240402
  Transmission Date: 20240716
  Serious: Yes (Hospitalization, Disabling, Other)
  Sender: FDA-Public Use
  Company Number: BR-ABBVIE-4138709

PATIENT
  Sex: Female
  Weight: 65 kg

DRUGS (6)
  1. RINVOQ [Suspect]
     Active Substance: UPADACITINIB
     Indication: Rheumatoid arthritis
     Dosage: 1 TABLET?LAST ADMIN DATE:2022
     Route: 048
     Dates: start: 20221118
  2. RINVOQ [Suspect]
     Active Substance: UPADACITINIB
     Indication: Rheumatoid arthritis
     Dosage: 1 TABLET
     Route: 048
     Dates: start: 202108, end: 202209
  3. RINVOQ [Suspect]
     Active Substance: UPADACITINIB
     Indication: Rheumatoid arthritis
     Dosage: 1 TABLET
     Route: 048
  4. RINVOQ [Suspect]
     Active Substance: UPADACITINIB
     Indication: Rheumatoid arthritis
     Route: 048
  5. INFLUENZA VIRUS VACCINE [Suspect]
     Active Substance: INFLUENZA VIRUS VACCINE
     Indication: Product used for unknown indication
     Route: 065
  6. Hemax [Concomitant]
     Indication: Renal disorder

REACTIONS (20)
  - Gait inability [Recovered/Resolved]
  - Swelling [Recovered/Resolved]
  - General physical health deterioration [Unknown]
  - Renal failure [Unknown]
  - Pulmonary oedema [Recovered/Resolved]
  - Bedridden [Recovered/Resolved]
  - Unevaluable event [Unknown]
  - Urinary tract infection [Unknown]
  - Endotracheal intubation [Unknown]
  - Pneumonia [Recovered/Resolved]
  - Muscle atrophy [Unknown]
  - Pneumonia [Unknown]
  - Renal impairment [Unknown]
  - Weight decreased [Unknown]
  - Asthenia [Recovering/Resolving]
  - Kidney infection [Recovering/Resolving]
  - Swelling [Not Recovered/Not Resolved]
  - Fluid retention [Recovering/Resolving]
  - Respiratory failure [Unknown]
  - Immunisation reaction [Unknown]

NARRATIVE: CASE EVENT DATE: 20220101
